FAERS Safety Report 7514312-6 (Version None)
Quarter: 2011Q2

REPORT INFORMATION
  Report Type: 
  Country: None (occurrence: None)
  Receive Date: 20110601
  Receipt Date: 20110523
  Transmission Date: 20111010
  Serious: No
  Sender: FDA-Public Use
  Company Number: US-BIOGENIDEC-2010BI007256

PATIENT
  Age: 47 Year
  Sex: Female

DRUGS (2)
  1. ANTIBIOTIC [Concomitant]
     Indication: PRODUCT USED FOR UNKNOWN INDICATION
  2. TYSABRI [Suspect]
     Indication: MULTIPLE SCLEROSIS
     Route: 042
     Dates: start: 20100204

REACTIONS (12)
  - MENTAL IMPAIRMENT [None]
  - DEPRESSION [None]
  - ABASIA [None]
  - DEPRESSED MOOD [None]
  - ABDOMINAL PAIN UPPER [None]
  - ASTHENIA [None]
  - ABDOMINAL DISCOMFORT [None]
  - CRYING [None]
  - FOOT FRACTURE [None]
  - FAECAL INCONTINENCE [None]
  - FATIGUE [None]
  - EUSTACHIAN TUBE DISORDER [None]
